FAERS Safety Report 15389521 (Version 1)
Quarter: 2018Q3

REPORT INFORMATION
  Report Type: Spontaneous
  Country: US (occurrence: US)
  Receive Date: 20180917
  Receipt Date: 20180917
  Transmission Date: 20181010
  Serious: No
  Sender: FDA-Public Use
  Company Number: US-TEVA-2017-US-828941

PATIENT
  Age: 54 Year
  Sex: Male

DRUGS (1)
  1. FENTANYL. [Suspect]
     Active Substance: FENTANYL
     Indication: ANALGESIC THERAPY
     Dosage: DOSE STRENGTH: 100MCG 5
     Route: 062
     Dates: start: 20171017

REACTIONS (6)
  - Yawning [Unknown]
  - Drug effect decreased [Unknown]
  - Product adhesion issue [Unknown]
  - Gait disturbance [Unknown]
  - Muscle spasms [Unknown]
  - Lacrimation increased [Unknown]

NARRATIVE: CASE EVENT DATE: 20171017
